FAERS Safety Report 15334019 (Version 2)
Quarter: 2018Q3

REPORT INFORMATION
  Report Type: Report from Study
  Country: US (occurrence: US)
  Receive Date: 20180830
  Receipt Date: 20180920
  Transmission Date: 20181010
  Serious: Yes (Life-Threatening, Hospitalization)
  Sender: FDA-Public Use
  Company Number: US-EISAI MEDICAL RESEARCH-EC-2016-013416

PATIENT
  Age: 70 Year
  Sex: Male
  Weight: 89 kg

DRUGS (17)
  1. ATORVASTATIN [Concomitant]
     Active Substance: ATORVASTATIN
  2. ZOMETA [Concomitant]
     Active Substance: ZOLEDRONIC ACID
  3. AMOXICILLIN. [Concomitant]
     Active Substance: AMOXICILLIN
  4. MORPHINE [Concomitant]
     Active Substance: MORPHINE
  5. POLYETHYLENE GLYCOL [Concomitant]
     Active Substance: POLYETHYLENE GLYCOLS
  6. ASPIRIN. [Concomitant]
     Active Substance: ASPIRIN
  7. BACLOFEN. [Concomitant]
     Active Substance: BACLOFEN
  8. LENVIMA [Suspect]
     Active Substance: LENVATINIB
     Dosage: 2 DAYS ON AND 1 DAY OFF
     Route: 048
     Dates: start: 20160916, end: 201612
  9. LENVIMA [Suspect]
     Active Substance: LENVATINIB
     Dosage: 2 DAYS ON AND 1 DAY OFF
     Route: 048
     Dates: end: 201804
  10. LENVIMA [Suspect]
     Active Substance: LENVATINIB
     Dosage: 2 DAYS ON AND 1 DAY OFF
     Route: 048
     Dates: start: 201804, end: 20180831
  11. LENVIMA [Suspect]
     Active Substance: LENVATINIB
     Route: 048
     Dates: start: 2016, end: 20160915
  12. INSULIN REGULAR [Concomitant]
     Active Substance: INSULIN NOS
  13. LEVOTHYROXINE. [Concomitant]
     Active Substance: LEVOTHYROXINE
  14. LENVIMA [Suspect]
     Active Substance: LENVATINIB
     Indication: FOLLICULAR THYROID CANCER
     Route: 048
     Dates: start: 20151230, end: 201803
  15. CLOPIDOGREL [Concomitant]
     Active Substance: CLOPIDOGREL BISULFATE
  16. INSULIN DETEMIR [Concomitant]
     Active Substance: INSULIN DETEMIR
  17. METOPROLOL TARTRATE. [Concomitant]
     Active Substance: METOPROLOL TARTRATE

REACTIONS (10)
  - Nasopharyngitis [Recovered/Resolved]
  - Osteomyelitis [Recovering/Resolving]
  - Myocardial infarction [Recovering/Resolving]
  - Myalgia [Recovering/Resolving]
  - Blood pressure increased [Recovered/Resolved]
  - Nausea [Recovered/Resolved]
  - Muscle spasms [Not Recovered/Not Resolved]
  - Fatigue [Not Recovered/Not Resolved]
  - Tooth infection [Unknown]
  - Jaw fistula [Unknown]

NARRATIVE: CASE EVENT DATE: 2016
